FAERS Safety Report 6821697-2 (Version None)
Quarter: 2010Q3

REPORT INFORMATION
  Report Type: 
  Country: None (occurrence: None)
  Receive Date: 20100702
  Receipt Date: 20100623
  Transmission Date: 20110219
  Serious: Yes (Hospitalization, Other)
  Sender: FDA-Public Use
  Company Number: BR-001162

PATIENT
  Sex: Female
  Weight: 21.5 kg

DRUGS (2)
  1. NAGLAZYME [Suspect]
     Indication: MUCOPOLYSACCHARIDOSIS IV
     Dosage: (4 VIALS INTRAVENOUS DRIP)
     Route: 041
     Dates: start: 20100519
  2. POLARAMINE /00072502/ [Concomitant]

REACTIONS (3)
  - BLOOD PRESSURE INCREASED [None]
  - INFUSION RELATED REACTION [None]
  - STRESS [None]
